FAERS Safety Report 8264979-2 (Version None)
Quarter: 2012Q2

REPORT INFORMATION
  Report Type: 
  Country: None (occurrence: None)
  Receive Date: 20120406
  Receipt Date: 20120328
  Transmission Date: 20120825
  Serious: Yes (Hospitalization)
  Sender: FDA-Public Use
  Company Number: HK-SANOFI-AVENTIS-2012SA023596

PATIENT
  Age: 83 Year
  Sex: Male

DRUGS (3)
  1. AMIODARONE [Concomitant]
     Indication: ATRIAL FIBRILLATION
     Dosage: TOTAL DOSE (INTRAVENOUS + ORAL): 4.6 G
     Route: 042
  2. DRONEDARONE HCL [Suspect]
     Indication: ATRIAL FIBRILLATION
     Route: 048
  3. AMIODARONE [Concomitant]
     Route: 048

REACTIONS (3)
  - RESPIRATORY FAILURE [None]
  - ORGANISING PNEUMONIA [None]
  - DYSPNOEA [None]
